FAERS Safety Report 8764258 (Version 1)
Quarter: 2012Q4

REPORT INFORMATION
  Report Type: 
  Country: JP (occurrence: JP)
  Receive Date: 20120831
  Receipt Date: 20120831
  Transmission Date: 20130627
  Serious: Yes (Other)
  Sender: FDA-Public Use
  Company Number: JP-PFIZER INC-2012178271

PATIENT
  Age: 72 Year
  Sex: Male

DRUGS (1)
  1. ZYVOX [Suspect]
     Indication: PNEUMONIA STAPHYLOCOCCAL
     Dosage: 1200 mg, 1x/day
     Route: 041
     Dates: start: 20120718, end: 20120724

REACTIONS (1)
  - Hyponatraemia [Recovered/Resolved]
